FAERS Safety Report 20540626 (Version 1)
Quarter: 2022Q1

REPORT INFORMATION
  Report Type: Spontaneous
  Country: GB (occurrence: GB)
  Receive Date: 20220302
  Receipt Date: 20220302
  Transmission Date: 20220423
  Serious: Yes (Other)
  Sender: FDA-Public Use
  Company Number: None

PATIENT
  Age: 2 Year
  Sex: Female
  Weight: 11.33 kg

DRUGS (2)
  1. OVEX [Suspect]
     Active Substance: MEBENDAZOLE
     Indication: Ill-defined disorder
     Dosage: 5ML
     Route: 048
     Dates: start: 20211103, end: 20211103
  2. OVEX [Suspect]
     Active Substance: MEBENDAZOLE
     Indication: Enterobiasis

REACTIONS (4)
  - Diarrhoea [Not Recovered/Not Resolved]
  - Illness [Not Recovered/Not Resolved]
  - Lethargy [Not Recovered/Not Resolved]
  - Decreased appetite [Not Recovered/Not Resolved]

NARRATIVE: CASE EVENT DATE: 20211103
